FAERS Safety Report 4588146-9 (Version None)
Quarter: 2005Q1

REPORT INFORMATION
  Report Type: 
  Country: None (occurrence: None)
  Receive Date: 20050221
  Receipt Date: 20050215
  Transmission Date: 20050727
  Serious: Yes (Hospitalization)
  Sender: FDA-Public Use
  Company Number: PHBS2005IE02398

PATIENT
  Age: 66 Year

DRUGS (1)
  1. CLOZARIL [Suspect]
     Indication: MEDICATION ERROR
     Dosage: UNK, UNK
     Route: 065
     Dates: start: 20050127, end: 20050127

REACTIONS (1)
  - ACCIDENTAL EXPOSURE [None]
